FAERS Safety Report 20636718 (Version 2)
Quarter: 2022Q2

REPORT INFORMATION
  Report Type: Spontaneous
  Country: FR (occurrence: FR)
  Receive Date: 20220325
  Receipt Date: 20220404
  Transmission Date: 20220720
  Serious: Yes (Hospitalization, Other)
  Sender: FDA-Public Use
  Company Number: None

PATIENT

DRUGS (3)
  1. BUPRENORPHINE [Suspect]
     Active Substance: BUPRENORPHINE
     Indication: Product used for unknown indication
     Dosage: 12 MILLIGRAM, QD
     Route: 064
     Dates: start: 202009, end: 202103
  2. BUPRENORPHINE [Suspect]
     Active Substance: BUPRENORPHINE
     Dosage: 14 MILLIGRAM, QD
     Route: 064
     Dates: start: 202103, end: 20210419
  3. TOBACCO LEAF [Suspect]
     Active Substance: TOBACCO LEAF
     Indication: Product used for unknown indication
     Dosage: 8 TO 12 CIG/ DAY
     Route: 064

REACTIONS (7)
  - Neonatal hypoxia [Recovering/Resolving]
  - Low birth weight baby [Recovering/Resolving]
  - Hypoventilation neonatal [Recovering/Resolving]
  - Premature baby [Recovered/Resolved]
  - Neonatal respiratory distress syndrome [Recovered/Resolved]
  - Drug withdrawal syndrome neonatal [Recovered/Resolved]
  - Foetal exposure during pregnancy [Recovered/Resolved with Sequelae]

NARRATIVE: CASE EVENT DATE: 20200901
